FAERS Safety Report 6770860-8 (Version None)
Quarter: 2010Q2

REPORT INFORMATION
  Report Type: 
  Country: None (occurrence: None)
  Receive Date: 20100614
  Receipt Date: 20100609
  Transmission Date: 20101027
  Serious: Yes (Hospitalization, Other)
  Sender: FDA-Public Use
  Company Number: IPC201006-000159

PATIENT
  Age: 57 Year
  Sex: Female

DRUGS (1)
  1. HYDROXYCHLOROQUINE SULFATE (HYDROXYCHLOROQUINE SULFATE) (HYDROXYCHLORO [Suspect]
     Indication: SJOGREN'S SYNDROME
     Dosage: 200 MG, 4 MG/KG BODY WEIGHT/DAY

REACTIONS (13)
  - ARTHRALGIA [None]
  - ASTHENIA [None]
  - EXTRANODAL MARGINAL ZONE B-CELL LYMPHOMA (MALT TYPE) [None]
  - EXTRAVASATION [None]
  - FATIGUE [None]
  - LEUKOCYTOCLASTIC VASCULITIS [None]
  - NEUROPATHY PERIPHERAL [None]
  - PAIN [None]
  - PURPURA [None]
  - READING DISORDER [None]
  - RETINAL TOXICITY [None]
  - SENSORY LOSS [None]
  - VISUAL ACUITY REDUCED [None]
